FAERS Safety Report 8811384 (Version 1)
Quarter: 2012Q4

REPORT INFORMATION
  Report Type: Spontaneous
  Country: GB (occurrence: None)
  Receive Date: 20120924
  Receipt Date: 20120924
  Transmission Date: 20130627
  Serious: Yes (Other)
  Sender: FDA-Public Use
  Company Number: 2012P1057113

PATIENT
  Age: 63 Year
  Sex: Female

DRUGS (1)
  1. LISINOPRIL [Suspect]
     Indication: HYPERTENSION
     Dates: start: 201002, end: 201102

REACTIONS (7)
  - Cough [None]
  - Gastrooesophageal reflux disease [None]
  - Eosinophilic oesophagitis [None]
  - Normochromic normocytic anaemia [None]
  - Hypergammaglobulinaemia [None]
  - Serum ferritin increased [None]
  - Weight decreased [None]
